FAERS Safety Report 8945418 (Version 12)
Quarter: 2013Q3

REPORT INFORMATION
  Report Type: Spontaneous
  Country: US (occurrence: US)
  Receive Date: 20121205
  Receipt Date: 20130904
  Transmission Date: 20140515
  Serious: Yes (Hospitalization, Other)
  Sender: FDA-Public Use
  Company Number: US-009507513-1212USA000884

PATIENT
  Age: 56 Year
  Sex: Male
  Weight: 86.17 kg

DRUGS (26)
  1. NUVIGIL [Concomitant]
     Dosage: UNK
  2. KLONOPIN [Concomitant]
     Dosage: UNK
     Route: 048
  3. HYDROCORT [Concomitant]
  4. PEGINTRON [Suspect]
     Indication: CHRONIC HEPATITIS C
     Dosage: 150 MICROGRAM/0.5 ML, QW, PEG-INTRON REDIPEN 150 MCG
     Route: 058
     Dates: start: 20121129, end: 20130809
  5. REBETOL [Suspect]
     Indication: HEPATITIS C
     Dosage: 600 MG (3 CAPSULES), QAM
     Route: 048
     Dates: start: 20121129
  6. REBETOL [Suspect]
     Dosage: 3 DF, QPM
     Route: 048
     Dates: start: 20121129
  7. REBETOL [Suspect]
     Dosage: 2 DF, QAM
     Route: 048
     Dates: start: 20121129
  8. REBETOL [Suspect]
     Dosage: 2 DF, QPM
     Route: 048
     Dates: start: 20121129
  9. REBETOL [Suspect]
     Dosage: 1200 MG, QD
     Route: 048
  10. REBETOL [Suspect]
     Dosage: 800 MG, QD
     Route: 048
     Dates: end: 20130809
  11. VICTRELIS [Suspect]
     Indication: CHRONIC HEPATITIS C
     Dosage: FOUR 200 MG CAPSULES 3 TIMES A DAY WITH FOOD
     Route: 048
     Dates: start: 20130104, end: 20130809
  12. ACCUPRIL [Concomitant]
     Route: 048
  13. CRESTOR [Concomitant]
     Route: 048
  14. VITAMINS (UNSPECIFIED) [Concomitant]
     Route: 048
  15. VITAMIN D (UNSPECIFIED) [Concomitant]
     Route: 048
  16. NEXIUM [Concomitant]
     Route: 048
  17. ASPIRIN [Concomitant]
     Dosage: 81 MG, UNK
     Route: 048
  18. AMBIEN [Concomitant]
     Dosage: 10 MG, UNK
     Route: 048
  19. MELATONIN [Concomitant]
     Dosage: 1 MG, UNK
     Route: 048
  20. TRAZODONE HYDROCHLORIDE [Concomitant]
     Dosage: 100 MG, UNK
     Route: 048
  21. HOMATROPINE METHYLBROMIDE (+) HYDROCODONE BITARTRATE [Concomitant]
     Route: 048
  22. FLONASE [Concomitant]
     Dosage: SPRAY
     Route: 045
  23. ADVAIR [Concomitant]
     Dosage: ADVAIR HFA AER 45/21
     Route: 055
  24. QUINAPRIL HYDROCHLORIDE [Concomitant]
     Dosage: 20 MG, UNK
     Route: 048
  25. PRAVASTATIN SODIUM [Concomitant]
     Route: 048
  26. BENADRYL [Concomitant]
     Dosage: 25 MG, UNK
     Route: 048

REACTIONS (52)
  - Gastrooesophageal reflux disease [Unknown]
  - Dyspnoea [Unknown]
  - Dysgeusia [Unknown]
  - Dry mouth [Unknown]
  - Decreased appetite [Unknown]
  - Fatigue [Unknown]
  - Chest pain [Unknown]
  - Dyspnoea [Unknown]
  - Pain [Unknown]
  - Influenza like illness [Not Recovered/Not Resolved]
  - Chills [Unknown]
  - Injection site pruritus [Unknown]
  - Injection site macule [Unknown]
  - Injection site rash [Not Recovered/Not Resolved]
  - Fatigue [Unknown]
  - Dyspnoea [Unknown]
  - Injection site erythema [Unknown]
  - Nausea [Unknown]
  - Injection site irritation [Unknown]
  - Stomatitis [Not Recovered/Not Resolved]
  - Mouth ulceration [Not Recovered/Not Resolved]
  - Chills [Unknown]
  - Dysgeusia [Unknown]
  - Decreased appetite [Unknown]
  - Rash [Unknown]
  - Pruritus [Unknown]
  - Fatigue [Unknown]
  - Haemorrhage [Unknown]
  - Dry mouth [Unknown]
  - Mouth ulceration [Unknown]
  - Dyspepsia [Unknown]
  - Gastrointestinal disorder [Unknown]
  - Chest pain [Unknown]
  - Gastrooesophageal reflux disease [Unknown]
  - Chest discomfort [Unknown]
  - Rash [Unknown]
  - Vision blurred [Unknown]
  - Sinus headache [Unknown]
  - Visual acuity reduced [Unknown]
  - Mouth ulceration [Recovering/Resolving]
  - Weight decreased [Unknown]
  - Decreased appetite [Recovering/Resolving]
  - Dysgeusia [Recovering/Resolving]
  - Dyspnoea [Unknown]
  - Malaise [Unknown]
  - Irritability [Unknown]
  - Hypothyroidism [Unknown]
  - Visual acuity reduced [Unknown]
  - Bruxism [Unknown]
  - Feeling of body temperature change [Unknown]
  - Rash pruritic [Not Recovered/Not Resolved]
  - Dry mouth [Not Recovered/Not Resolved]
